FAERS Safety Report 9442368 (Version 1)
Quarter: 2013Q3

REPORT INFORMATION
  Report Type: Spontaneous
  Country: US (occurrence: US)
  Receive Date: 20130806
  Receipt Date: 20130806
  Transmission Date: 20140515
  Serious: No
  Sender: FDA-Public Use
  Company Number: US-GLAXOSMITHKLINE-A1012662A

PATIENT
  Age: 83 Year
  Sex: Female

DRUGS (5)
  1. ADVAIR [Suspect]
     Indication: ASTHMA
     Dates: start: 2011, end: 20130211
  2. CALCIUM SUPPLEMENT [Concomitant]
  3. ZOLPIDEM TARTRATE [Concomitant]
  4. LATANOPROST [Concomitant]
  5. BETIMOL [Concomitant]

REACTIONS (4)
  - Dry mouth [Not Recovered/Not Resolved]
  - Dysphonia [Not Recovered/Not Resolved]
  - Dysphonia [Not Recovered/Not Resolved]
  - Product quality issue [Unknown]
